FAERS Safety Report 5757277-X (Version None)
Quarter: 2008Q2

REPORT INFORMATION
  Report Type: 
  Country: None (occurrence: None)
  Receive Date: 20080603
  Receipt Date: 20080527
  Transmission Date: 20081010
  Serious: Yes (Other)
  Sender: FDA-Public Use
  Company Number: JP-BAXTER-2008BH005550

PATIENT

DRUGS (1)
  1. TISSUCOL/TISSEEL KIT [Suspect]
     Indication: SURGERY
     Dosage: DOSE UNIT:UNKNOWN
     Dates: start: 20030801

REACTIONS (2)
  - HEPATITIS C [None]
  - MALAISE [None]
